FAERS Safety Report 17850370 (Version 1)
Quarter: 2020Q2

REPORT INFORMATION
  Report Type: Spontaneous
  Country: JP (occurrence: JP)
  Receive Date: 20200602
  Receipt Date: 20200602
  Transmission Date: 20200714
  Serious: Yes (Other)
  Sender: FDA-Public Use
  Company Number: JP-PFIZER INC-2020211962

PATIENT

DRUGS (2)
  1. XALATAN [Suspect]
     Active Substance: LATANOPROST
     Indication: GLAUCOMA
  2. XALATAN [Suspect]
     Active Substance: LATANOPROST
     Indication: EYE PAIN

REACTIONS (1)
  - Blindness [Unknown]
